FAERS Safety Report 25800182 (Version 1)
Quarter: 2025Q3

REPORT INFORMATION
  Report Type: Spontaneous
  Country: US (occurrence: US)
  Receive Date: 20250915
  Receipt Date: 20250915
  Transmission Date: 20251021
  Serious: No
  Sender: ROCHE
  Company Number: US-ROCHE-10000384146

PATIENT
  Age: 79 Year
  Sex: Male
  Weight: 90.26 kg

DRUGS (16)
  1. ACTEMRA ACTPEN [Suspect]
     Active Substance: TOCILIZUMAB
     Indication: Rheumatoid arthritis
     Route: 058
     Dates: start: 20250905
  2. ACTEMRA ACTPEN [Suspect]
     Active Substance: TOCILIZUMAB
     Indication: Giant cell arteritis
  3. PREDNISONE [Concomitant]
     Active Substance: PREDNISONE
     Indication: Myalgia
     Route: 048
     Dates: start: 20250817, end: 20250906
  4. PREDNISONE [Concomitant]
     Active Substance: PREDNISONE
     Route: 048
     Dates: start: 20250906
  5. ATORVASTATIN [Concomitant]
     Active Substance: ATORVASTATIN
     Indication: Venous operation
     Dosage: TAKES IN THE EVENING
     Route: 048
     Dates: start: 1997
  6. ATORVASTATIN [Concomitant]
     Active Substance: ATORVASTATIN
     Indication: Blood cholesterol increased
  7. MYCOPHENOLIC ACID [Concomitant]
     Active Substance: MYCOPHENOLIC ACID
     Indication: Pemphigoid
     Dosage: STARTED 3-4 YEARS AGO. TAKES 1000MG IN THE DAY.
     Route: 048
  8. MYCOPHENOLIC ACID [Concomitant]
     Active Substance: MYCOPHENOLIC ACID
     Dosage: STARTED 3-4 YEARS AGO. TAKES 500MG IN THE EVENING.
     Route: 048
  9. FARXIGA [Concomitant]
     Active Substance: DAPAGLIFLOZIN PROPANEDIOL
     Route: 048
     Dates: start: 202506
  10. PROSCAR [Concomitant]
     Active Substance: FINASTERIDE
     Route: 048
  11. FUROSEMIDE (LASIX ) [Concomitant]
     Indication: Peripheral swelling
     Dosage: WAS TAKING 2 20MG TABLETS DAILY. STOPPED 8-10 DAYS AGO.
     Route: 048
     Dates: start: 202505, end: 2025
  12. LISINOPRIL [Concomitant]
     Active Substance: LISINOPRIL
     Route: 048
     Dates: start: 1997
  13. METOPROLOL [Concomitant]
     Active Substance: METOPROLOL
     Route: 048
     Dates: start: 1997
  14. WARFARIN [Concomitant]
     Active Substance: WARFARIN
     Indication: International normalised ratio decreased
     Dosage: 2.5MG EVERY SATURDAY AND WEDNESDAY
     Route: 048
     Dates: start: 20250906
  15. WARFARIN [Concomitant]
     Active Substance: WARFARIN
     Indication: Hypercoagulation
     Dosage: TAKES ON MONDAY, TUESDAY, THURSDAY, FRIDAY AND SUNDAY.
     Route: 048
     Dates: start: 20250906
  16. BACTRIM [Concomitant]
     Active Substance: SULFAMETHOXAZOLE\TRIMETHOPRIM
     Indication: White blood cell count increased
     Dosage: 800/160MG TAKES EVERY MONDAY, WEDNESDAY AND FRIDAY.
     Route: 048
     Dates: start: 202508

REACTIONS (4)
  - Haemorrhage [Unknown]
  - Device issue [Unknown]
  - Wrong technique in device usage process [Unknown]
  - Product dose omission issue [Unknown]

NARRATIVE: CASE EVENT DATE: 20250906
